FAERS Safety Report 6112899-1 (Version None)
Quarter: 2009Q1

REPORT INFORMATION
  Report Type: 
  Country: None (occurrence: None)
  Receive Date: 20090312
  Receipt Date: 20090210
  Transmission Date: 20090719
  Serious: No
  Sender: FDA-Public Use
  Company Number: US-BAYER-200910555BCC

PATIENT
  Sex: Female
  Weight: 59 kg

DRUGS (2)
  1. ALEVE [Suspect]
     Indication: HEADACHE
     Dosage: UNIT DOSE: 220 MG
  2. ALEVE [Suspect]
     Dosage: UNIT DOSE: 220 MG

REACTIONS (3)
  - BACK PAIN [None]
  - HEADACHE [None]
  - NAUSEA [None]
